FAERS Safety Report 24869743 (Version 1)
Quarter: 2025Q1

REPORT INFORMATION
  Report Type: Report from Study
  Country: BY (occurrence: BY)
  Receive Date: 20250121
  Receipt Date: 20250121
  Transmission Date: 20250408
  Serious: Yes (Death)
  Sender: MYLAN
  Company Number: BY-MYLANLABS-2025M1005159

PATIENT
  Age: 65 Year
  Sex: Male
  Weight: 54 kg

DRUGS (10)
  1. PRETOMANID [Suspect]
     Active Substance: PRETOMANID
     Indication: Tuberculosis
     Dosage: 200 MILLIGRAM, QD
     Route: 048
     Dates: start: 20230320, end: 20230913
  2. BEDAQUILINE [Suspect]
     Active Substance: BEDAQUILINE
     Indication: Tuberculosis
     Dosage: 400 MILLIGRAM, QD (400 MG OD FOR 2 WEEKS)
     Route: 048
     Dates: start: 20230320
  3. BEDAQUILINE [Suspect]
     Active Substance: BEDAQUILINE
     Dosage: 200 MILLIGRAM, 3XW (N 200 MG TIW PO)
     Route: 048
     Dates: end: 20230913
  4. LINEZOLID [Suspect]
     Active Substance: LINEZOLID
     Indication: Tuberculosis
     Dosage: 600 MILLIGRAM, QD (600 MG OD PO FOR 112  DOSES THEN 300 MG OD)
     Route: 048
     Dates: start: 20230320
  5. LINEZOLID [Suspect]
     Active Substance: LINEZOLID
     Dosage: 300 MILLIGRAM, QD (600 MG OD PO FOR 112  DOSES THEN 300 MG OD)
     Route: 048
     Dates: end: 20230913
  6. MOXIFLOXACIN [Suspect]
     Active Substance: MOXIFLOXACIN
     Indication: Tuberculosis
     Dosage: 400 MILLIGRAM, QD (400 MG OD PO)
     Route: 048
     Dates: start: 20230320, end: 20230913
  7. OMEPRAZOLE [Concomitant]
     Active Substance: OMEPRAZOLE
     Indication: Prophylaxis
     Route: 048
     Dates: start: 20230216, end: 20230913
  8. NAPROXEN [Concomitant]
     Active Substance: NAPROXEN
     Indication: Bladder cancer
     Route: 048
     Dates: start: 20240425, end: 20240622
  9. BISOPROLOL [Concomitant]
     Active Substance: BISOPROLOL
     Indication: Myocardial ischaemia
     Route: 048
     Dates: start: 20231221
  10. TRAMADOL [Concomitant]
     Active Substance: TRAMADOL
     Indication: Bladder cancer
     Route: 048
     Dates: start: 20240622, end: 20240828

REACTIONS (2)
  - Bladder cancer [Fatal]
  - Neoplasm progression [Fatal]

NARRATIVE: CASE EVENT DATE: 20240729
